FAERS Safety Report 5381153-8 (Version None)
Quarter: 2007Q3

REPORT INFORMATION
  Report Type: 
  Country: None (occurrence: None)
  Receive Date: 20070706
  Receipt Date: 20070626
  Transmission Date: 20080115
  Serious: Yes (Hospitalization)
  Sender: FDA-Public Use
  Company Number: US-PFIZER INC-2007051849

PATIENT
  Sex: Male
  Weight: 69.9 kg

DRUGS (9)
  1. SUTENT [Suspect]
     Indication: PROSTATE CANCER
     Dates: start: 20070518, end: 20070614
  2. PREVACID [Concomitant]
  3. LIPITOR [Concomitant]
  4. LORTAB [Concomitant]
  5. XANAX [Concomitant]
  6. VITAMIN CAP [Concomitant]
     Dosage: FREQ:DAILY
     Route: 048
  7. ROXICODONE [Concomitant]
  8. ZITHROMAX [Concomitant]
  9. OXYIR [Concomitant]

REACTIONS (3)
  - ALTERED STATE OF CONSCIOUSNESS [None]
  - DIARRHOEA [None]
  - PYREXIA [None]
